FAERS Safety Report 9925693 (Version 1)
Quarter: 2014Q1

REPORT INFORMATION
  Report Type: Spontaneous
  Country: US (occurrence: None)
  Receive Date: 20140221
  Receipt Date: 20140221
  Transmission Date: 20141002
  Serious: Yes (Other)
  Sender: FDA-Public Use
  Company Number: 001641370A

PATIENT
  Age: 31 Year
  Sex: Female

DRUGS (3)
  1. PROACTIV RENEWING CLEANSER [Suspect]
     Indication: ACNE
     Dosage: DERMAL
     Route: 061
     Dates: start: 20131201, end: 20131203
  2. PROACTIV REPAIRING TREATMENT [Suspect]
     Indication: ACNE
     Dosage: DERMAL
     Route: 061
     Dates: start: 20131201, end: 20131203
  3. FISH OIL [Concomitant]

REACTIONS (2)
  - Swelling face [None]
  - Urticaria [None]
